FAERS Safety Report 24576544 (Version 4)
Quarter: 2025Q1

REPORT INFORMATION
  Report Type: Report from Study
  Country: CN (occurrence: CN)
  Receive Date: 20241104
  Receipt Date: 20250203
  Transmission Date: 20250409
  Serious: Yes (Hospitalization)
  Sender: PHARMACOSMOS A/S
  Company Number: CN-SIMCERE ZAIMING PHARMACEUTICAL CO., LTD.-2024XSYY4711

PATIENT
  Age: 53 Year
  Sex: Female
  Weight: 51.5 kg

DRUGS (9)
  1. TRILACICLIB [Suspect]
     Active Substance: TRILACICLIB
     Indication: Lung squamous cell carcinoma stage IV
     Dates: start: 20241017, end: 20241017
  2. TISLELIZUMAB [Suspect]
     Active Substance: TISLELIZUMAB
     Indication: Lung squamous cell carcinoma stage IV
     Dates: start: 20241017, end: 20241017
  3. PACLITAXEL [Suspect]
     Active Substance: PACLITAXEL
     Indication: Lung squamous cell carcinoma stage IV
     Dates: start: 20241017, end: 20241017
  4. CARBOPLATIN [Suspect]
     Active Substance: CARBOPLATIN
     Indication: Product used for unknown indication
     Dates: start: 20241017, end: 20241024
  5. AMLODIPINE BESYLATE [Concomitant]
     Active Substance: AMLODIPINE BESYLATE
     Indication: Hypertension
     Dates: start: 2021
  6. CODEINE PHOSPHATE [Concomitant]
     Active Substance: CODEINE PHOSPHATE
     Indication: Cough
     Dates: start: 20241010, end: 20241011
  7. CODEINE PHOSPHATE\IBUPROFEN [Concomitant]
     Active Substance: CODEINE PHOSPHATE\IBUPROFEN
     Indication: Analgesic therapy
     Dates: start: 20241010, end: 20241015
  8. COMPOUND PHOLCODINE [Concomitant]
     Indication: Cough
     Dates: start: 20241013, end: 20241015
  9. COMPOUND PHOLCODINE [Concomitant]
     Indication: Cough
     Dates: start: 20241013, end: 20241015

REACTIONS (2)
  - Hyponatraemia [Recovering/Resolving]
  - Hyponatraemia [Recovering/Resolving]

NARRATIVE: CASE EVENT DATE: 20241024
